FAERS Safety Report 17000718 (Version 5)
Quarter: 2021Q2

REPORT INFORMATION
  Report Type: Report from Study
  Country: BR (occurrence: BR)
  Receive Date: 20191106
  Receipt Date: 20210611
  Transmission Date: 20210716
  Serious: Yes (Hospitalization, Other)
  Sender: FDA-Public Use
  Company Number: BR-BIOGEN-2019BI00692722

PATIENT
  Sex: Female

DRUGS (22)
  1. AVONEX PEN [Suspect]
     Active Substance: INTERFERON BETA-1A
     Route: 050
     Dates: start: 2005, end: 201210
  2. AVONEX PEN [Suspect]
     Active Substance: INTERFERON BETA-1A
     Route: 050
     Dates: start: 20121105, end: 20160404
  3. AVONEX PEN [Suspect]
     Active Substance: INTERFERON BETA-1A
     Route: 050
     Dates: start: 20181001
  4. AVONEX PEN [Suspect]
     Active Substance: INTERFERON BETA-1A
     Route: 030
     Dates: start: 2012, end: 2017
  5. GLATIRAMER [Suspect]
     Active Substance: GLATIRAMER
     Indication: MULTIPLE SCLEROSIS
     Route: 050
  6. AVONEX [Suspect]
     Active Substance: INTERFERON BETA-1A
     Indication: MULTIPLE SCLEROSIS
     Route: 030
     Dates: start: 2005, end: 2011
  7. AVONEX [Suspect]
     Active Substance: INTERFERON BETA-1A
  8. AVONEX [Suspect]
     Active Substance: INTERFERON BETA-1A
  9. OMEPRAZOLE. [Concomitant]
     Active Substance: OMEPRAZOLE
     Indication: PRODUCT USED FOR UNKNOWN INDICATION
     Route: 065
  10. AVONEX PEN [Suspect]
     Active Substance: INTERFERON BETA-1A
     Route: 030
     Dates: start: 201211, end: 201604
  11. AVONEX PEN [Suspect]
     Active Substance: INTERFERON BETA-1A
     Route: 030
     Dates: start: 201810
  12. FAMPYRA [Suspect]
     Active Substance: DALFAMPRIDINE
     Indication: GAIT DISTURBANCE
     Route: 048
  13. FLU VACCINE [Concomitant]
     Active Substance: INFLUENZA VIRUS VACCINE
     Indication: PRODUCT USED FOR UNKNOWN INDICATION
     Route: 065
  14. AVONEX PEN [Suspect]
     Active Substance: INTERFERON BETA-1A
     Route: 030
     Dates: start: 201811
  15. AVONEX [Suspect]
     Active Substance: INTERFERON BETA-1A
  16. FLUOXETINE [Concomitant]
     Active Substance: FLUOXETINE HYDROCHLORIDE
     Indication: PRODUCT USED FOR UNKNOWN INDICATION
     Route: 065
  17. SIMVASTATIN. [Concomitant]
     Active Substance: SIMVASTATIN
     Indication: PRODUCT USED FOR UNKNOWN INDICATION
     Route: 065
  18. LONIUM [Concomitant]
     Active Substance: OTILONIUM BROMIDE
     Indication: PRODUCT USED FOR UNKNOWN INDICATION
     Route: 065
  19. MAGNESIUM ASPARTATE [Concomitant]
     Active Substance: MAGNESIUM ASPARTATE
     Indication: PRODUCT USED FOR UNKNOWN INDICATION
     Route: 065
  20. FAMPYRA [Suspect]
     Active Substance: DALFAMPRIDINE
     Route: 048
     Dates: start: 201801
  21. AVONEX PEN [Suspect]
     Active Substance: INTERFERON BETA-1A
     Indication: MULTIPLE SCLEROSIS
     Route: 050
     Dates: start: 20060504, end: 20121015
  22. MAGNESIUM ASPARTATE [Concomitant]
     Active Substance: MAGNESIUM ASPARTATE
     Route: 065

REACTIONS (11)
  - Osteopenia [Not Recovered/Not Resolved]
  - Respiratory arrest [Recovered/Resolved]
  - Pyrexia [Not Recovered/Not Resolved]
  - Malaise [Unknown]
  - Nausea [Recovered/Resolved]
  - Influenza like illness [Not Recovered/Not Resolved]
  - Pain in extremity [Unknown]
  - Pain [Recovered/Resolved]
  - Chest pain [Unknown]
  - Hypersensitivity [Unknown]
  - Headache [Not Recovered/Not Resolved]

NARRATIVE: CASE EVENT DATE: 2018
